FAERS Safety Report 8958132 (Version 2)
Quarter: 2013Q1

REPORT INFORMATION
  Report Type: Spontaneous
  Country: BR (occurrence: BR)
  Receive Date: 20121211
  Receipt Date: 20130221
  Transmission Date: 20140127
  Serious: Yes (Life-Threatening, Hospitalization, Other)
  Sender: FDA-Public Use
  Company Number: PHHY2012BR113040

PATIENT
  Age: 37 Year
  Sex: Female

DRUGS (6)
  1. TRILEPTAL [Suspect]
     Indication: DEPRESSION
     Dosage: 1.5 DF, A HALF TABLET IN THE MORNING 1 TABLET AT NIGHT
     Route: 048
  2. TRILEPTAL [Suspect]
     Dosage: UNK UKN, UNK
  3. DIAZEPAM [Suspect]
     Indication: DEPRESSION
     Dosage: 0.5 DF, QHS
  4. FLUOXETINE [Suspect]
     Dosage: 1 DF, DAILY
     Route: 048
  5. EXODUS [Suspect]
     Dosage: 1 DF, QD
  6. RIVOTRIL [Concomitant]
     Indication: INSOMNIA
     Dosage: 1 DF, DAILY
     Route: 048

REACTIONS (11)
  - Road traffic accident [Recovered/Resolved with Sequelae]
  - Coma [Recovered/Resolved with Sequelae]
  - Femur fracture [Recovering/Resolving]
  - Foot fracture [Recovering/Resolving]
  - Gait disturbance [Recovering/Resolving]
  - Abdominal injury [Recovering/Resolving]
  - Osteoarthritis [Recovering/Resolving]
  - Joint stiffness [Recovering/Resolving]
  - Joint dislocation [Recovering/Resolving]
  - Skin exfoliation [Recovering/Resolving]
  - Depression [Recovering/Resolving]
